FAERS Safety Report 5499795-8 (Version None)
Quarter: 2007Q4

REPORT INFORMATION
  Report Type: 
  Country: None (occurrence: None)
  Receive Date: 20071026
  Receipt Date: 20071016
  Transmission Date: 20080405
  Serious: Yes (Other)
  Sender: FDA-Public Use
  Company Number: US-PFIZER INC-2007072713

PATIENT
  Sex: Male
  Weight: 143.2 kg

DRUGS (10)
  1. CHANTIX [Suspect]
     Indication: SMOKING CESSATION THERAPY
  2. ACTOS [Suspect]
  3. METFORMIN [Concomitant]
  4. GLIPIZIDE [Concomitant]
  5. LANTUS [Concomitant]
  6. ACETYLSALICYLIC ACID SRT [Concomitant]
  7. FUROSEMIDE [Concomitant]
  8. LISINOPRIL [Concomitant]
  9. POTASSIUM CHLORIDE [Concomitant]
  10. GEMFIBROZIL [Concomitant]

REACTIONS (4)
  - BLOOD GLUCOSE INCREASED [None]
  - DIABETES MELLITUS [None]
  - GLYCOSYLATED HAEMOGLOBIN INCREASED [None]
  - OEDEMA PERIPHERAL [None]
